FAERS Safety Report 12781235 (Version 1)
Quarter: 2016Q3

REPORT INFORMATION
  Report Type: Spontaneous
  Country: US (occurrence: US)
  Receive Date: 20160926
  Receipt Date: 20160926
  Transmission Date: 20161109
  Serious: No
  Sender: FDA-Public Use
  Company Number: US-GLENMARK PHARMACEUTICALS INC, USA.-2015GMK018969

PATIENT
  Age: 74 Year
  Sex: Male

DRUGS (4)
  1. DIPHENHYDRAMINE. [Concomitant]
     Active Substance: DIPHENHYDRAMINE
     Indication: ANAPHYLAXIS PROPHYLAXIS
     Dosage: 50 MG, 30 MIN PRIOR TO SURGERY
     Route: 042
  2. MONTELUKAST [Suspect]
     Active Substance: MONTELUKAST SODIUM
     Indication: ANAPHYLAXIS PROPHYLAXIS
     Dosage: 10 MG, AT 6PM THE EVENING PRIOR TO SURGERY
     Route: 048
  3. PROTAMINE [Concomitant]
     Active Substance: PROTAMINE
     Indication: HEPARIN NEUTRALISATION THERAPY
     Dosage: UNK
     Route: 042
  4. METHYLPREDNISOLONE. [Concomitant]
     Active Substance: METHYLPREDNISOLONE
     Indication: ANAPHYLAXIS PROPHYLAXIS
     Dosage: 40 MG, 3 DOSES AT 13 HRS, 7 HRS AND 1 HOUR PRIOR TO SURGERY
     Route: 042

REACTIONS (2)
  - Off label use [Unknown]
  - Therapeutic response unexpected [Unknown]
